FAERS Safety Report 17673397 (Version 1)
Quarter: 2020Q2

REPORT INFORMATION
  Report Type: Spontaneous
  Country: AU (occurrence: AU)
  Receive Date: 20200415
  Receipt Date: 20200415
  Transmission Date: 20200713
  Serious: Yes (Other)
  Sender: FDA-Public Use
  Company Number: NVSC2020AU097773

PATIENT
  Sex: Male

DRUGS (12)
  1. IMATINIB. [Suspect]
     Active Substance: IMATINIB MESYLATE
     Indication: GRAFT VERSUS HOST DISEASE
     Route: 065
  2. IBRUTINIB [Suspect]
     Active Substance: IBRUTINIB
     Indication: GRAFT VERSUS HOST DISEASE
     Dosage: UNK
     Route: 065
  3. METHOTREXATE. [Suspect]
     Active Substance: METHOTREXATE
     Indication: GRAFT VERSUS HOST DISEASE
     Route: 065
  4. RITUXIMAB. [Suspect]
     Active Substance: RITUXIMAB
     Indication: GRAFT VERSUS HOST DISEASE
     Dosage: 5 MG, BID
     Route: 065
  5. MONTELUKAST [Suspect]
     Active Substance: MONTELUKAST SODIUM
     Indication: PRODUCT USED FOR UNKNOWN INDICATION
     Route: 065
  6. MYCOPHENOLATE MOFETIL. [Suspect]
     Active Substance: MYCOPHENOLATE MOFETIL
     Indication: GRAFT VERSUS HOST DISEASE
     Route: 065
  7. AZITHROMYCIN ANHYDROUS. [Suspect]
     Active Substance: AZITHROMYCIN ANHYDROUS
     Indication: GRAFT VERSUS HOST DISEASE
     Dosage: UNK
     Route: 065
  8. PREDNISONE. [Suspect]
     Active Substance: PREDNISONE
     Indication: GRAFT VERSUS HOST DISEASE
     Dosage: UNK
     Route: 065
  9. RITUXIMAB. [Suspect]
     Active Substance: RITUXIMAB
     Dosage: 10 MG, BID
     Route: 065
  10. TACROLIMUS. [Suspect]
     Active Substance: TACROLIMUS
     Indication: GRAFT VERSUS HOST DISEASE
     Dosage: UNK
     Route: 065
  11. ETOPOSIDE. [Suspect]
     Active Substance: ETOPOSIDE
     Indication: PRODUCT USED FOR UNKNOWN INDICATION
     Dosage: UNK
     Route: 065
  12. JAKAVI [Suspect]
     Active Substance: RUXOLITINIB
     Indication: GRAFT VERSUS HOST DISEASE
     Dosage: 5 MG, BID
     Route: 048

REACTIONS (5)
  - Therapy partial responder [Not Recovered/Not Resolved]
  - Graft versus host disease in lung [Unknown]
  - Non-Hodgkin^s lymphoma [Unknown]
  - Acute respiratory failure [Unknown]
  - Scleroderma [Unknown]

NARRATIVE: CASE EVENT DATE: 2014
